FAERS Safety Report 25091863 (Version 4)
Quarter: 2025Q4

REPORT INFORMATION
  Report Type: Spontaneous
  Country: US (occurrence: US)
  Receive Date: 20250318
  Receipt Date: 20251218
  Transmission Date: 20260118
  Serious: Yes (Hospitalization)
  Sender: SYNDAX
  Company Number: US-SYNDAX PHARMACEUTICALS, INC.-2025US000245

PATIENT
  Sex: Female
  Weight: 55.329 kg

DRUGS (9)
  1. REVUFORJ [Suspect]
     Active Substance: REVUMENIB CITRATE
     Indication: Acute myeloid leukaemia
     Dosage: 110 MILLIGRAM, BID
     Route: 048
     Dates: start: 20250219
  2. REVUFORJ [Suspect]
     Active Substance: REVUMENIB CITRATE
     Dosage: 160 MILLIGRAM, BID
     Route: 048
     Dates: start: 20250219
  3. REVUFORJ [Suspect]
     Active Substance: REVUMENIB CITRATE
     Dosage: 110 MILLIGRAM, BID
     Route: 048
  4. GRANISETRON [Concomitant]
     Active Substance: GRANISETRON
     Indication: Product used for unknown indication
     Route: 065
  5. MULTIVITAMIN                       /00097801/ [Concomitant]
     Indication: Product used for unknown indication
     Route: 065
  6. VALACYCLOVIR                       /01269701/ [Concomitant]
     Indication: Product used for unknown indication
     Route: 065
  7. ERGOCALCIFEROL [Concomitant]
     Active Substance: ERGOCALCIFEROL
     Indication: Product used for unknown indication
     Route: 065
  8. BACTRIM [Concomitant]
     Active Substance: SULFAMETHOXAZOLE\TRIMETHOPRIM
     Indication: Product used for unknown indication
     Route: 065
  9. BUDESONIDE [Concomitant]
     Active Substance: BUDESONIDE
     Indication: Product used for unknown indication
     Route: 065

REACTIONS (6)
  - Hypertension [Unknown]
  - Vomiting [Unknown]
  - Nausea [Unknown]
  - Platelet count decreased [Recovered/Resolved]
  - Toxicity to various agents [Not Recovered/Not Resolved]
  - Nausea [Unknown]
